FAERS Safety Report 10561865 (Version 1)
Quarter: 2014Q4

REPORT INFORMATION
  Report Type: Spontaneous
  Country: ES (occurrence: ES)
  Receive Date: 20141104
  Receipt Date: 20141104
  Transmission Date: 20150529
  Serious: Yes (Hospitalization)
  Sender: FDA-Public Use
  Company Number: ES-ROCHE-1483912

PATIENT
  Age: 58 Year
  Sex: Female

DRUGS (2)
  1. IBUPROFENO [Suspect]
     Active Substance: IBUPROFEN
     Indication: PRODUCT USED FOR UNKNOWN INDICATION
     Route: 048
     Dates: start: 20140801, end: 20140830
  2. HERCEPTIN [Suspect]
     Active Substance: TRASTUZUMAB
     Indication: BREAST CANCER
     Dosage: 600 MG/5ML?LAST DOSE PRIOR TO EVENT RECEIVED ON 28/AUG/2014
     Route: 042
     Dates: start: 201401, end: 20140828

REACTIONS (3)
  - Dermatitis exfoliative [Recovered/Resolved]
  - Headache [Recovered/Resolved]
  - Oedema [Recovered/Resolved]

NARRATIVE: CASE EVENT DATE: 20140830
